FAERS Safety Report 6141903-X (Version None)
Quarter: 2009Q2

REPORT INFORMATION
  Report Type: 
  Country: None (occurrence: None)
  Receive Date: 20090402
  Receipt Date: 20090326
  Transmission Date: 20091009
  Serious: Yes (Death, Other)
  Sender: FDA-Public Use
  Company Number: PHHY2009FR11294

PATIENT
  Sex: Female

DRUGS (3)
  1. ZOLEDRONIC ACID [Suspect]
     Indication: METASTASES TO BONE
     Dosage: 4 MG EVERY 3 WEEKS
  2. CLODRONATE DISODIUM [Concomitant]
     Dosage: FOR 15 MONTHS
     Route: 048
  3. BEVACIZUMAB [Concomitant]
     Dosage: FOR 2-3 MONTHS

REACTIONS (3)
  - DEATH [None]
  - OSTEONECROSIS [None]
  - TOOTH EXTRACTION [None]
